FAERS Safety Report 9855366 (Version 1)
Quarter: 2014Q1

REPORT INFORMATION
  Report Type: Spontaneous
  Country: US (occurrence: None)
  Receive Date: 20140129
  Receipt Date: 20140129
  Transmission Date: 20141002
  Serious: Yes (Hospitalization)
  Sender: FDA-Public Use
  Company Number: None

PATIENT
  Age: 55 Year
  Sex: Male
  Weight: 85.1 kg

DRUGS (1)
  1. AMOXICILLIN/CLAVULANATE [Suspect]
     Route: 048
     Dates: start: 20131205, end: 20131206

REACTIONS (8)
  - Lip swelling [None]
  - Swelling face [None]
  - Rash macular [None]
  - Rash [None]
  - Rash [None]
  - Drug reaction with eosinophilia and systemic symptoms [None]
  - Liver function test abnormal [None]
  - Eosinophilia [None]
